FAERS Safety Report 23207859 (Version 1)
Quarter: 2023Q4

REPORT INFORMATION
  Report Type: Spontaneous
  Country: US (occurrence: None)
  Receive Date: 20231121
  Receipt Date: 20231121
  Transmission Date: 20240109
  Serious: No
  Sender: FDA-Public Use
  Company Number: 2023A259885

PATIENT
  Age: 29863 Day
  Sex: Male
  Weight: 103.9 kg

DRUGS (2)
  1. DALIRESP [Suspect]
     Active Substance: ROFLUMILAST
     Indication: Pruritus
     Route: 048
     Dates: start: 20230828
  2. DALIRESP [Suspect]
     Active Substance: ROFLUMILAST
     Indication: Pruritus
     Route: 048
     Dates: end: 20231002

REACTIONS (3)
  - Heart rate increased [Recovered/Resolved]
  - Tremor [Recovered/Resolved]
  - Agitation neonatal [Recovered/Resolved]

NARRATIVE: CASE EVENT DATE: 20231001
